FAERS Safety Report 25368210 (Version 1)
Quarter: 2025Q2

REPORT INFORMATION
  Report Type: Spontaneous
  Country: US (occurrence: None)
  Receive Date: 20250527
  Receipt Date: 20250527
  Transmission Date: 20250716
  Serious: Yes (Disabling, Other)
  Sender: FDA-CTU
  Company Number: None

PATIENT
  Age: 50 Year
  Sex: Female
  Weight: 46.35 kg

DRUGS (1)
  1. ESCITALOPRAM [Suspect]
     Active Substance: ESCITALOPRAM OXALATE
     Indication: Generalised anxiety disorder
     Route: 048

REACTIONS (13)
  - Withdrawal syndrome [None]
  - Tinnitus [None]
  - Head discomfort [None]
  - Insomnia [None]
  - Electric shock sensation [None]
  - Photophobia [None]
  - Hyperacusis [None]
  - Hyperacusis [None]
  - Akathisia [None]
  - Hypophagia [None]
  - Weight decreased [None]
  - Somnolence [None]
  - Suicidal ideation [None]

NARRATIVE: CASE EVENT DATE: 20241223
